FAERS Safety Report 23842664 (Version 1)
Quarter: 2024Q2

REPORT INFORMATION
  Report Type: Spontaneous
  Country: IL (occurrence: IL)
  Receive Date: 20240510
  Receipt Date: 20240510
  Transmission Date: 20240716
  Serious: Yes (Other)
  Sender: FDA-Public Use
  Company Number: IL-002147023-NVSC2024IL096226

PATIENT
  Age: 6 Year
  Sex: Male

DRUGS (3)
  1. OXCARBAZEPINE [Suspect]
     Active Substance: OXCARBAZEPINE
     Indication: Seizure
     Route: 065
  2. BACLOFEN [Concomitant]
     Active Substance: BACLOFEN
     Indication: Tendon pain
     Dosage: UNK
     Route: 065
  3. BOTULINUM TOXIN NOS [Concomitant]
     Active Substance: BOTULINUM TOXIN NOS
     Indication: Tendon pain
     Dosage: UNK
     Route: 065

REACTIONS (3)
  - Tonic convulsion [Unknown]
  - Rebound effect [Unknown]
  - Staring [Unknown]
